FAERS Safety Report 12372643 (Version 1)
Quarter: 2016Q2

REPORT INFORMATION
  Report Type: Spontaneous
  Country: BR (occurrence: BR)
  Receive Date: 20160516
  Receipt Date: 20160516
  Transmission Date: 20160815
  Serious: Yes (Other)
  Sender: FDA-Public Use
  Company Number: BR-PFIZER INC-2016253349

PATIENT
  Age: 68 Year
  Sex: Female
  Weight: 60 kg

DRUGS (4)
  1. ATORVASTATIN CALCIUM. [Suspect]
     Active Substance: ATORVASTATIN CALCIUM
  2. AMITRIL [Concomitant]
     Active Substance: AMITRIPTYLINE HYDROCHLORIDE
     Indication: DEPRESSION
     Dosage: 2 DF, UNK
     Dates: start: 2003
  3. LIPITOR [Suspect]
     Active Substance: ATORVASTATIN CALCIUM
     Dosage: 10 MG, UNK
     Dates: start: 2008
  4. LEXOTAN [Concomitant]
     Active Substance: BROMAZEPAM
     Indication: RELAXATION THERAPY
     Dosage: 1 DF, UNK
     Dates: start: 2014

REACTIONS (5)
  - Eye contusion [Unknown]
  - Memory impairment [Not Recovered/Not Resolved]
  - Infarction [Unknown]
  - Skull fracture [Unknown]
  - Road traffic accident [Unknown]
